FAERS Safety Report 8391735-7 (Version None)
Quarter: 2012Q2

REPORT INFORMATION
  Report Type: 
  Country: None (occurrence: None)
  Receive Date: 20120529
  Receipt Date: 20120524
  Transmission Date: 20120825
  Serious: Yes (Hospitalization)
  Sender: FDA-Public Use
  Company Number: US-PFIZER INC-2012090664

PATIENT
  Sex: Female
  Weight: 49.433 kg

DRUGS (1)
  1. VFEND [Suspect]
     Dosage: 200 MG, 2X/DAY
     Route: 048

REACTIONS (3)
  - LIGAMENT SPRAIN [None]
  - ACCIDENT [None]
  - JOINT INJURY [None]
